FAERS Safety Report 5394387-3 (Version None)
Quarter: 2007Q3

REPORT INFORMATION
  Report Type: 
  Country: None (occurrence: None)
  Receive Date: 20070723
  Receipt Date: 20070712
  Transmission Date: 20080115
  Serious: Yes (Hospitalization)
  Sender: FDA-Public Use
  Company Number: TW-SANOFI-SYNTHELABO-A01200707570

PATIENT
  Sex: Male
  Weight: 61 kg

DRUGS (6)
  1. Q10 [Concomitant]
     Indication: CARDIAC FAILURE CONGESTIVE
     Dosage: UNK
     Route: 065
  2. CEFROM [Concomitant]
     Indication: STAPHYLOCOCCAL INFECTION
     Route: 042
     Dates: start: 20070225, end: 20070315
  3. VANCOCIN-CP [Concomitant]
     Indication: STAPHYLOCOCCAL INFECTION
     Route: 042
     Dates: start: 20070225, end: 20070315
  4. NEXIUM [Suspect]
     Indication: GASTROINTESTINAL ULCER
     Route: 048
     Dates: start: 20070208, end: 20070228
  5. PLAVIX [Suspect]
     Indication: ANTIPLATELET THERAPY
     Route: 048
     Dates: start: 20070103, end: 20070228
  6. PLAVIX [Suspect]
     Indication: INFARCTION
     Route: 048
     Dates: start: 20070103, end: 20070228

REACTIONS (1)
  - HEPATIC ENZYME INCREASED [None]
